FAERS Safety Report 20945411 (Version 1)
Quarter: 2022Q2

REPORT INFORMATION
  Report Type: Spontaneous
  Country: US (occurrence: None)
  Receive Date: 20220609
  Receipt Date: 20220609
  Transmission Date: 20220720
  Serious: Yes (unspecified)
  Sender: FDA-Public Use
  Company Number: None

PATIENT
  Age: 56 Year
  Sex: Male
  Weight: 106.5 kg

DRUGS (1)
  1. RENFLEXIS [Suspect]
     Active Substance: INFLIXIMAB-ABDA
     Indication: Rheumatoid arthritis
     Dosage: FREQUENCY : ONCE;?
     Route: 042
     Dates: start: 20220426, end: 20220426

REACTIONS (5)
  - Dizziness [None]
  - Pruritus [None]
  - Feeling abnormal [None]
  - Oropharyngeal discomfort [None]
  - Nausea [None]

NARRATIVE: CASE EVENT DATE: 20220426
